FAERS Safety Report 11303042 (Version 1)
Quarter: 2015Q3

REPORT INFORMATION
  Report Type: Spontaneous
  Country: GB (occurrence: GB)
  Receive Date: 20150723
  Receipt Date: 20150723
  Transmission Date: 20151125
  Serious: Yes (Hospitalization, Other)
  Sender: FDA-Public Use
  Company Number: GB-WATSON-2015-15105

PATIENT
  Age: 54 Year
  Sex: Male
  Weight: 96 kg

DRUGS (2)
  1. HALOPERIDOL (UNKNOWN) [Suspect]
     Active Substance: HALOPERIDOL
     Indication: AGITATION
     Dosage: AS REQUIRED; ADMINISTERED TWICE
     Route: 048
     Dates: start: 20150611, end: 20150616
  2. OLANZAPINE (UNKNOWN) [Suspect]
     Active Substance: OLANZAPINE
     Indication: ACUTE PSYCHOSIS
     Dosage: 5 MG, BID
     Route: 048
     Dates: start: 20150611, end: 20150616

REACTIONS (4)
  - Pyrexia [Recovered/Resolved]
  - Muscle rigidity [Recovered/Resolved]
  - Neuroleptic malignant syndrome [Recovered/Resolved]
  - Blood creatine phosphokinase increased [Recovered/Resolved]

NARRATIVE: CASE EVENT DATE: 20150612
